FAERS Safety Report 17050142 (Version 3)
Quarter: 2020Q1

REPORT INFORMATION
  Report Type: Report from Study
  Country: US (occurrence: US)
  Receive Date: 20191119
  Receipt Date: 20200226
  Transmission Date: 20200409
  Serious: Yes (Hospitalization)
  Sender: FDA-Public Use
  Company Number: US-ACTELION-A-NJ2019-189235

PATIENT
  Sex: Female

DRUGS (13)
  1. HYDROCODONE/ACETAMINOPHEN [Concomitant]
     Active Substance: ACETAMINOPHEN\HYDROCODONE
  2. VALACYCLOVIR HCL [Concomitant]
     Active Substance: VALACYCLOVIR HYDROCHLORIDE
  3. LEVOFLOXACIN. [Concomitant]
     Active Substance: LEVOFLOXACIN
  4. FERROUS SULFATE. [Concomitant]
     Active Substance: FERROUS SULFATE
  5. OXYCODONE HYDROCHLORIDE. [Concomitant]
     Active Substance: OXYCODONE HYDROCHLORIDE
  6. MONTELUKAST SODIUM. [Concomitant]
     Active Substance: MONTELUKAST SODIUM
  7. FLUCONAZOLE. [Concomitant]
     Active Substance: FLUCONAZOLE
  8. LASIX [Concomitant]
     Active Substance: FUROSEMIDE
  9. GABAPENTIN. [Concomitant]
     Active Substance: GABAPENTIN
  10. OPSUMIT [Suspect]
     Active Substance: MACITENTAN
     Indication: PULMONARY HYPERTENSION
     Dosage: 10 MG
     Route: 048
     Dates: start: 20181231
  11. COLACE [Concomitant]
     Active Substance: DOCUSATE SODIUM
  12. ONDANSETRON ODT DRLA [Concomitant]
     Active Substance: ONDANSETRON
  13. GUAIATUSSIN AC [Concomitant]
     Active Substance: CODEINE PHOSPHATE\GUAIFENESIN

REACTIONS (4)
  - Hysterectomy [Recovered/Resolved]
  - Influenza [Unknown]
  - Hospitalisation [Unknown]
  - Pneumonia [Unknown]
